FAERS Safety Report 8770419 (Version 1)
Quarter: 2012Q4

REPORT INFORMATION
  Report Type: 
  Country: CY (occurrence: CY)
  Receive Date: 20120906
  Receipt Date: 20120906
  Transmission Date: 20130627
  Serious: Yes (Other)
  Sender: FDA-Public Use
  Company Number: PHHY2012CY075292

PATIENT
  Age: 19 Year
  Sex: Male

DRUGS (1)
  1. DEFERASIROX [Suspect]
     Indication: THALASSAEMIA BETA
     Dosage: 20 mg/kg, per day

REACTIONS (2)
  - Nephrolithiasis [Unknown]
  - Proteinuria [None]
